FAERS Safety Report 10207924 (Version 1)
Quarter: 2014Q2

REPORT INFORMATION
  Report Type: Spontaneous
  Country: US (occurrence: US)
  Receive Date: 20140530
  Receipt Date: 20140530
  Transmission Date: 20141212
  Serious: No
  Sender: FDA-Public Use
  Company Number: US-GLAXOSMITHKLINE-A1065394A

PATIENT
  Age: 39 Year
  Sex: Female

DRUGS (4)
  1. VENTOLIN [Suspect]
     Indication: BRONCHITIS CHRONIC
     Dosage: 3PUFF FIVE TIMES PER DAY
     Route: 055
     Dates: start: 2013
  2. ALBUTEROL NEBULIZER [Concomitant]
  3. METFORMIN [Concomitant]
  4. MULTIPLE MEDICATIONS [Concomitant]

REACTIONS (3)
  - Malaise [Not Recovered/Not Resolved]
  - Pyrexia [Not Recovered/Not Resolved]
  - Cough [Not Recovered/Not Resolved]
